FAERS Safety Report 10519599 (Version 1)
Quarter: 2014Q4

REPORT INFORMATION
  Report Type: Spontaneous
  Country: US (occurrence: US)
  Receive Date: 20141015
  Receipt Date: 20141015
  Transmission Date: 20150528
  Serious: Yes (Other)
  Sender: FDA-Public Use
  Company Number: US-ROXANE LABORATORIES, INC.-2014-RO-01567RO

PATIENT
  Age: 41 Year
  Sex: Female

DRUGS (1)
  1. PREDNISONE. [Suspect]
     Active Substance: PREDNISONE
     Indication: PYODERMA GANGRENOSUM
     Route: 065

REACTIONS (4)
  - Adrenal insufficiency [Unknown]
  - Cushingoid [Unknown]
  - Blood glucose abnormal [Unknown]
  - Sleep apnoea syndrome [Unknown]
